FAERS Safety Report 6384931-1 (Version None)
Quarter: 2009Q4

REPORT INFORMATION
  Report Type: 
  Country: None (occurrence: None)
  Receive Date: 20091002
  Receipt Date: 20090708
  Transmission Date: 20100525
  Serious: No
  Sender: FDA-Public Use
  Company Number: A0795896A

PATIENT
  Sex: Male

DRUGS (3)
  1. REQUIP XL [Suspect]
     Indication: PARKINSON'S DISEASE
     Dosage: 12MG TWICE PER DAY
     Route: 048
     Dates: start: 20071001
  2. CREATINE [Concomitant]
  3. MULTI-VITAMIN [Concomitant]

REACTIONS (4)
  - ANXIETY [None]
  - FATIGUE [None]
  - HYPERHIDROSIS [None]
  - OEDEMA PERIPHERAL [None]
